FAERS Safety Report 10789538 (Version 1)
Quarter: 2015Q1

REPORT INFORMATION
  Report Type: Spontaneous
  Country: US (occurrence: US)
  Receive Date: 20150212
  Receipt Date: 20150212
  Transmission Date: 20150721
  Serious: No
  Sender: FDA-Public Use
  Company Number: US-GLAXOSMITHKLINE-A1082679A

PATIENT

DRUGS (3)
  1. NONE [Concomitant]
     Active Substance: UNSPECIFIED INGREDIENT
  2. VENTOLIN [Suspect]
     Active Substance: ALBUTEROL SULFATE
     Indication: ASTHMA
     Route: 055
     Dates: start: 20140507, end: 20140624
  3. FLOVENT [Suspect]
     Active Substance: FLUTICASONE PROPIONATE
     Indication: ASTHMA
     Dosage: 110MCG
     Route: 055
     Dates: start: 20140616, end: 20140621

REACTIONS (14)
  - Labelled drug-disease interaction medication error [Unknown]
  - Asthma [Recovered/Resolved]
  - Asthenia [Recovered/Resolved]
  - Therapeutic response decreased [Recovered/Resolved]
  - Drug administration error [Unknown]
  - Dyspnoea exertional [Recovered/Resolved]
  - Productive cough [Recovered/Resolved]
  - Fatigue [Recovered/Resolved]
  - Hypersensitivity [Recovered/Resolved]
  - Dyspnoea [Recovered/Resolved]
  - Blood pressure abnormal [Recovered/Resolved]
  - Emotional distress [Recovered/Resolved]
  - Cough [Recovered/Resolved]
  - Productive cough [Recovered/Resolved]

NARRATIVE: CASE EVENT DATE: 20140621
